FAERS Safety Report 10094509 (Version 1)
Quarter: 2014Q2

REPORT INFORMATION
  Report Type: Spontaneous
  Country: US (occurrence: None)
  Receive Date: 20140421
  Receipt Date: 20140421
  Transmission Date: 20141212
  Serious: Yes (Disabling)
  Sender: FDA-Public Use
  Company Number: None

PATIENT
  Age: 59 Year
  Sex: Female
  Weight: 70.31 kg

DRUGS (2)
  1. MONTELUKAST [Suspect]
     Indication: RHINITIS ALLERGIC
     Route: 048
     Dates: start: 20140220, end: 20140418
  2. MONTELUKAST [Suspect]
     Route: 048
     Dates: start: 20140220, end: 20140418

REACTIONS (3)
  - Sinusitis [None]
  - Condition aggravated [None]
  - Purulent discharge [None]
